FAERS Safety Report 8690720 (Version 2)
Quarter: 2013Q1

REPORT INFORMATION
  Report Type: Spontaneous
  Country: US (occurrence: US)
  Receive Date: 20120727
  Receipt Date: 20130214
  Transmission Date: 20140127
  Serious: Yes (Other)
  Sender: FDA-Public Use
  Company Number: US-ASTRAZENECA-2012SE05233

PATIENT
  Age: 23 Year
  Sex: Male

DRUGS (3)
  1. SEROQUEL [Suspect]
     Indication: DEPRESSION
     Route: 048
  2. SEROQUEL [Suspect]
     Indication: DEPRESSION
     Route: 048
  3. LAMICTAL [Concomitant]

REACTIONS (5)
  - Suicidal ideation [Unknown]
  - Mood altered [Unknown]
  - Mood swings [Unknown]
  - Depression [Unknown]
  - Drug ineffective [Unknown]
